FAERS Safety Report 26144692 (Version 1)
Quarter: 2025Q4

REPORT INFORMATION
  Report Type: Spontaneous
  Country: US (occurrence: None)
  Receive Date: 20251210
  Receipt Date: 20251210
  Transmission Date: 20260117
  Serious: Yes (Life-Threatening, Hospitalization)
  Sender: FDA-CTU
  Company Number: None

PATIENT
  Age: 67 Year
  Sex: Male
  Weight: 89 kg

DRUGS (3)
  1. TRAMADOL HYDROCHLORIDE [Suspect]
     Active Substance: TRAMADOL HYDROCHLORIDE
  2. DULOXETINE HYDROCHLORIDE [Suspect]
     Active Substance: DULOXETINE HYDROCHLORIDE
  3. GABAPENTIN [Suspect]
     Active Substance: GABAPENTIN

REACTIONS (4)
  - Intentional overdose [None]
  - Overdose [None]
  - Lethargy [None]
  - Acidosis hyperchloraemic [None]

NARRATIVE: CASE EVENT DATE: 20251013
